FAERS Safety Report 9173970 (Version 3)
Quarter: 2014Q2

REPORT INFORMATION
  Report Type: Spontaneous
  Country: US (occurrence: US)
  Receive Date: 20130320
  Receipt Date: 20140611
  Transmission Date: 20141212
  Serious: Yes (Other)
  Sender: FDA-Public Use
  Company Number: US-PFIZER INC-2013086644

PATIENT
  Age: 50 Year
  Sex: Female
  Weight: 65.08 kg

DRUGS (11)
  1. XALKORI [Suspect]
     Indication: NON-SMALL CELL LUNG CANCER STAGE IV
     Dosage: 250 MG, 2X/DAY
     Route: 048
     Dates: start: 201301
  2. XALKORI [Suspect]
     Dosage: 250 MG, 2X/DAY
     Route: 048
     Dates: start: 20130219, end: 20130605
  3. FLONASE [Concomitant]
     Dosage: 50 UG, UNK
  4. QVAR [Concomitant]
     Dosage: 40 UG, UNK
  5. LORAZEPAM [Concomitant]
     Indication: ANXIETY
     Dosage: 0.5 MG, 2 TABLET (30 MINUTES BEFORE MRI, AND 1 PO Q6 HR PRN
     Route: 048
  6. PROCHLORPERAZINE MALEATE [Concomitant]
     Dosage: 10 MG, 2X/DAY
     Route: 048
  7. ONDANSETRON [Concomitant]
     Indication: NAUSEA
     Dosage: 8 MG, AS NEEDED (4 MG, 2 TABS PO EVERY 8 HRS PRN )
     Route: 048
  8. LASIX [Concomitant]
     Dosage: 40 MG, (20 MG TABS 2 TABLETS PO DAILY PRN )
     Route: 048
  9. POTASSIUM CHLORIDE [Concomitant]
     Dosage: 10 MEQ, DAILY
     Route: 048
  10. DIAZEPAM [Concomitant]
     Indication: SLEEP DISORDER
     Dosage: 5 MG, AS NEEDED
     Route: 048
  11. HYDROCODONE W/ACETAMINOPHEN [Concomitant]
     Indication: PAIN
     Dosage: HYDROCODONE 5 MG-ACETAMINOPHEN 325 MG (1 TAB PO Q 4-6 HRS PRN)
     Route: 048

REACTIONS (16)
  - Electrocardiogram QT prolonged [Recovered/Resolved]
  - Disease progression [Unknown]
  - Lung neoplasm malignant [Unknown]
  - Nausea [Recovered/Resolved]
  - Photopsia [Unknown]
  - Arthralgia [Unknown]
  - Dysgeusia [Unknown]
  - Parosmia [Unknown]
  - Chills [Unknown]
  - Cough [Recovered/Resolved]
  - Oedema peripheral [Recovered/Resolved]
  - Fatigue [Unknown]
  - Oropharyngeal pain [Unknown]
  - Vomiting [Unknown]
  - Diarrhoea [Recovered/Resolved]
  - Sinus bradycardia [Unknown]
